FAERS Safety Report 22394505 (Version 1)
Quarter: 2023Q2

REPORT INFORMATION
  Report Type: Spontaneous
  Country: US (occurrence: US)
  Receive Date: 20230601
  Receipt Date: 20230601
  Transmission Date: 20230721
  Serious: Yes (Other)
  Sender: FDA-Public Use
  Company Number: US-PFIZER INC-PV202300096921

PATIENT
  Age: 25 Year
  Sex: Male

DRUGS (2)
  1. CIBINQO [Interacting]
     Active Substance: ABROCITINIB
     Dosage: UNK
     Route: 048
  2. ZOLOFT [Interacting]
     Active Substance: SERTRALINE HYDROCHLORIDE
     Dosage: UNK

REACTIONS (2)
  - Haemorrhage [Unknown]
  - Drug interaction [Unknown]
